FAERS Safety Report 5232099-7 (Version None)
Quarter: 2007Q1

REPORT INFORMATION
  Report Type: 
  Country: None (occurrence: None)
  Receive Date: 20070205
  Receipt Date: 20070129
  Transmission Date: 20070707
  Serious: Yes (Hospitalization)
  Sender: FDA-Public Use
  Company Number: 163-21880-07010509

PATIENT
  Age: 75 Year
  Sex: Male

DRUGS (10)
  1. REVLIMID [Suspect]
     Indication: MULTIPLE MYELOMA
     Dosage: 25 MG, 1 IN 1 D; ORAL; 15 MG, 1 IN 1 D; ORAL
     Route: 048
     Dates: start: 20061109, end: 20061201
  2. REVLIMID [Suspect]
     Indication: MULTIPLE MYELOMA
     Dosage: 25 MG, 1 IN 1 D; ORAL; 15 MG, 1 IN 1 D; ORAL
     Route: 048
     Dates: start: 20070101
  3. DEXAMETHASONE [Concomitant]
  4. OXYCONTIN [Concomitant]
  5. OXYCODONE HCL [Concomitant]
  6. ZOMETA [Concomitant]
  7. ASPIRIN [Concomitant]
  8. DURAGESIC-100 [Concomitant]
  9. ZANTAC [Concomitant]
  10. ZOCOR [Concomitant]

REACTIONS (5)
  - FACIAL BONES FRACTURE [None]
  - FALL [None]
  - HEAD INJURY [None]
  - JOINT DISLOCATION [None]
  - LACERATION [None]
